FAERS Safety Report 8593314 (Version 3)
Quarter: 2013Q2

REPORT INFORMATION
  Report Type: Spontaneous
  Country: US (occurrence: US)
  Receive Date: 20120604
  Receipt Date: 20130515
  Transmission Date: 20140414
  Serious: Yes (Disabling)
  Sender: FDA-Public Use
  Company Number: US-BAYER-2012-054554

PATIENT
  Age: 22 Year
  Sex: Female
  Weight: 56.69 kg

DRUGS (3)
  1. MIRENA [Suspect]
     Indication: CONTRACEPTION
     Dosage: 20 MCG/24HR, CONT
     Route: 015
     Dates: start: 201204, end: 201205
  2. LAMICTAL [Concomitant]
     Indication: EPILEPSY
     Dosage: 200 MG, BID
  3. KEPPRA [Concomitant]
     Indication: EPILEPSY
     Dosage: 500 MG, BID

REACTIONS (7)
  - Vulvovaginal pain [Recovered/Resolved]
  - Pain [Recovered/Resolved]
  - Abasia [Recovered/Resolved]
  - Mobility decreased [Recovered/Resolved]
  - Fall [None]
  - Device expulsion [Recovered/Resolved]
  - Vomiting [None]
